FAERS Safety Report 5088263-3 (Version None)
Quarter: 2006Q3

REPORT INFORMATION
  Report Type: 
  Country: None (occurrence: None)
  Receive Date: 20060727
  Receipt Date: 20060613
  Transmission Date: 20061208
  Serious: Yes (Other)
  Sender: FDA-Public Use
  Company Number: 2006075883

PATIENT
  Sex: Male
  Weight: 90.7194 kg

DRUGS (3)
  1. LYRICA [Suspect]
     Indication: INTERVERTEBRAL DISC DEGENERATION
     Dosage: 150 MG (75 MG 2 IN 1 D)
     Route: 065
     Dates: start: 20060607, end: 20060608
  2. VICODIN [Concomitant]
  3. TYLENOL W/ CODEINE [Concomitant]

REACTIONS (2)
  - CHEST DISCOMFORT [None]
  - CHEST PAIN [None]
